FAERS Safety Report 24796642 (Version 1)
Quarter: 2025Q1

REPORT INFORMATION
  Report Type: Spontaneous
  Country: FR (occurrence: FR)
  Receive Date: 20250101
  Receipt Date: 20250101
  Transmission Date: 20250408
  Serious: Yes (Hospitalization)
  Sender: UCB
  Company Number: FR-UCBSA-2024068460

PATIENT
  Age: 66 Year
  Sex: Male

DRUGS (1)
  1. CIMZIA [Suspect]
     Active Substance: CERTOLIZUMAB PEGOL
     Indication: Product used for unknown indication
     Dosage: 200 MILLIGRAM, WEEKLY (QW) (1 INJECTION)
     Dates: end: 20241227

REACTIONS (2)
  - Hospitalisation [Recovered/Resolved]
  - Product prescribing error [Unknown]
